FAERS Safety Report 6574544-0 (Version None)
Quarter: 2010Q1

REPORT INFORMATION
  Report Type: 
  Country: None (occurrence: None)
  Receive Date: 20100209
  Receipt Date: 20090730
  Transmission Date: 20100710
  Serious: No
  Sender: FDA-Public Use
  Company Number: A0799680A

PATIENT
  Age: 48 Year
  Sex: Female

DRUGS (6)
  1. PAROXETINE HCL [Suspect]
     Indication: DEPRESSION
     Dosage: 37.5MG PER DAY
     Route: 048
     Dates: start: 20080101
  2. ANTI-DIABETIC MEDICATION [Concomitant]
  3. UNKNOWN DRUG FOR ANXIETY [Concomitant]
  4. HEART MEDICATION [Concomitant]
  5. UNKNOWN MEDICATION [Concomitant]
     Indication: RESPIRATION ABNORMAL
  6. NASAL SPRAY [Concomitant]

REACTIONS (7)
  - AGGRESSION [None]
  - APATHY [None]
  - CRYING [None]
  - DEPRESSION [None]
  - IMPAIRED WORK ABILITY [None]
  - PERSONALITY CHANGE [None]
  - SCREAMING [None]
